FAERS Safety Report 8064744-5 (Version None)
Quarter: 2012Q1

REPORT INFORMATION
  Report Type: 
  Country: None (occurrence: None)
  Receive Date: 20120124
  Receipt Date: 20120116
  Transmission Date: 20120608
  Serious: Yes (Death)
  Sender: FDA-Public Use
  Company Number: JP-ACCORD-012068

PATIENT
  Age: 59 Year
  Sex: Male

DRUGS (1)
  1. DOCETAXEL [Suspect]
     Dosage: SECOND LINE CHEMOTHERAPY WITH SINGLE DOCETAXEL WAS ADMINISTERED.

REACTIONS (1)
  - ACUTE LUNG INJURY [None]
